FAERS Safety Report 9396733 (Version 1)
Quarter: 2013Q3

REPORT INFORMATION
  Report Type: Spontaneous
  Country: IT (occurrence: IT)
  Receive Date: 20130712
  Receipt Date: 20130712
  Transmission Date: 20140515
  Serious: Yes (Hospitalization)
  Sender: FDA-Public Use
  Company Number: IT-ASTRAZENECA-2013SE50693

PATIENT
  Age: 20859 Day
  Sex: Female

DRUGS (8)
  1. SEROQUEL [Suspect]
     Indication: INTENTIONAL SELF-INJURY
     Route: 048
     Dates: start: 20130702, end: 20130702
  2. SEROQUEL [Suspect]
     Indication: INTENTIONAL SELF-INJURY
     Route: 048
  3. MINIAS [Suspect]
     Indication: INTENTIONAL SELF-INJURY
     Dosage: 2.5 MG/ML, 20 ML,ONCE
     Route: 048
     Dates: start: 20130702, end: 20130702
  4. TAVOR [Suspect]
     Indication: INTENTIONAL SELF-INJURY
     Route: 048
     Dates: start: 20130702, end: 20130702
  5. TAVOR [Suspect]
     Indication: INTENTIONAL SELF-INJURY
     Route: 048
  6. XANAX (ALPRAZOLAM) [Suspect]
     Route: 048
     Dates: start: 20130702, end: 20130702
  7. OMEPRAZOLE [Concomitant]
  8. SEREPRILE [Concomitant]
     Route: 048

REACTIONS (3)
  - Intentional self-injury [Recovering/Resolving]
  - Speech disorder [Recovering/Resolving]
  - Sopor [Recovering/Resolving]
